FAERS Safety Report 7459629-9 (Version None)
Quarter: 2011Q2

REPORT INFORMATION
  Report Type: 
  Country: None (occurrence: None)
  Receive Date: 20110505
  Receipt Date: 20110426
  Transmission Date: 20111010
  Serious: Yes (Hospitalization, Other)
  Sender: FDA-Public Use
  Company Number: PHHY2011BR36254

PATIENT
  Age: 48 Year
  Sex: Female

DRUGS (1)
  1. SLOW-K [Suspect]
     Indication: ELECTROLYTE SUBSTITUTION THERAPY
     Dosage: 600 MG, 8 TABLET A DAY

REACTIONS (6)
  - HYPOAESTHESIA [None]
  - PAIN IN EXTREMITY [None]
  - INCORRECT DOSE ADMINISTERED [None]
  - MEMORY IMPAIRMENT [None]
  - BLOOD POTASSIUM DECREASED [None]
  - PARALYSIS [None]
